FAERS Safety Report 13019863 (Version 1)
Quarter: 2016Q4

REPORT INFORMATION
  Report Type: Spontaneous
  Country: US (occurrence: US)
  Receive Date: 20161212
  Receipt Date: 20161212
  Transmission Date: 20170207
  Serious: No
  Sender: FDA-Public Use
  Company Number: US-ROCHE-1745756

PATIENT
  Sex: Female
  Weight: 85.28 kg

DRUGS (10)
  1. XELJANZ [Concomitant]
     Active Substance: TOFACITINIB CITRATE
     Indication: RHEUMATOID ARTHRITIS
     Dosage: 5MG TABLETS, ONE TABLET BY MOUTH IN THE MORNING AND ONE IN THE EVENING
     Route: 065
     Dates: start: 20160401, end: 20160417
  2. ALDACTONE [Concomitant]
     Active Substance: SPIRONOLACTONE
     Indication: CARDIAC FAILURE CONGESTIVE
     Dosage: 25MG TABLET, ONE TABLET BY MOUTH DAILY
     Route: 065
  3. SERTRALINE HCL [Concomitant]
     Active Substance: SERTRALINE HYDROCHLORIDE
     Indication: DEPRESSION
     Route: 065
  4. PRAVASTATIN. [Concomitant]
     Active Substance: PRAVASTATIN
     Indication: BLOOD CHOLESTEROL INCREASED
     Dosage: 40MG TABLET, ONE TABLET BY MOUTH AT NIGHT
     Route: 065
  5. BUMEX [Concomitant]
     Active Substance: BUMETANIDE
     Indication: CARDIAC FAILURE CONGESTIVE
     Dosage: 0.5MG TABLETS, ONE TABLET BY MOUTH DAILY
     Route: 065
  6. NOVOLIN 70/30 [Concomitant]
     Active Substance: INSULIN HUMAN
     Indication: DIABETES MELLITUS
     Dosage: 25 UNIT INJ IN STOMACH IN AM; 15 UNIT INJ IN STOMACH IN PM
     Route: 065
  7. COREG [Concomitant]
     Active Substance: CARVEDILOL
     Dosage: 6.25MG TABLETS, ONE TABLET BY MOUTH IN THE AM AND IN THE PM
     Route: 065
  8. WARFARIN [Concomitant]
     Active Substance: WARFARIN
     Indication: ANTICOAGULANT THERAPY
     Dosage: 2MG TABLET, THREE TABLETS ON TUESDAYS AND THURSDAYS AND AND TWO TABLETS BY MOUTH ON ALL OTHER DAYS
     Route: 065
  9. ACTEMRA [Suspect]
     Active Substance: TOCILIZUMAB
     Indication: RHEUMATOID ARTHRITIS
     Route: 042
  10. ADCIRCA [Concomitant]
     Active Substance: TADALAFIL
     Indication: PULMONARY HYPERTENSION
     Dosage: 20MG TABLET, TWO TABLETS BY MOUTH IN THE AM
     Route: 065

REACTIONS (1)
  - Peripheral swelling [Unknown]
